FAERS Safety Report 5295534-4 (Version None)
Quarter: 2007Q2

REPORT INFORMATION
  Report Type: 
  Country: None (occurrence: None)
  Receive Date: 20070405
  Receipt Date: 20070326
  Transmission Date: 20071010
  Serious: Yes (Hospitalization)
  Sender: FDA-Public Use
  Company Number: B0464493A

PATIENT
  Age: 7 Year
  Sex: Male

DRUGS (2)
  1. AMOXICILLIN TRIHYDRATE + POTASSIUM  CLAVULANTE (FORMULATION  (AMOX.TRI [Suspect]
     Indication: PHARYNGITIS STREPTOCOCCAL
  2. PARACETAMOL [Concomitant]

REACTIONS (1)
  - STEVENS-JOHNSON SYNDROME [None]
